FAERS Safety Report 6464683-7 (Version None)
Quarter: 2009Q4

REPORT INFORMATION
  Report Type: 
  Country: None (occurrence: None)
  Receive Date: 20091201
  Receipt Date: 20091124
  Transmission Date: 20100525
  Serious: Yes (Death)
  Sender: FDA-Public Use
  Company Number: CHPA2009US22621

PATIENT
  Age: 82 Year
  Sex: Female

DRUGS (1)
  1. EXCEDRIN (MIGRAINE) [Suspect]
     Dosage: UNK, QD
     Route: 048

REACTIONS (3)
  - DEATH [None]
  - INTENTIONAL DRUG MISUSE [None]
  - WRONG TECHNIQUE IN DRUG USAGE PROCESS [None]
